FAERS Safety Report 16864935 (Version 2)
Quarter: 2019Q4

REPORT INFORMATION
  Report Type: Report from Study
  Country: None (occurrence: IL)
  Receive Date: 20190929
  Receipt Date: 20191009
  Transmission Date: 20200122
  Serious: Yes (Hospitalization)
  Sender: FDA-Public Use
  Company Number: IL-ABBVIE-19K-082-2942081-00

PATIENT
  Sex: Female

DRUGS (1)
  1. DUODOPA [Suspect]
     Active Substance: CARBIDOPA\LEVODOPA
     Indication: PARKINSON^S DISEASE
     Dosage: CURRENT MD 13ML, CD 2.8ML/HOUR, ED1.3ML
     Route: 050
     Dates: start: 20190519

REACTIONS (2)
  - Fatigue [Unknown]
  - Heart valve stenosis [Recovered/Resolved]

NARRATIVE: CASE EVENT DATE: 2019
